FAERS Safety Report 11646591 (Version 1)
Quarter: 2015Q4

REPORT INFORMATION
  Report Type: Spontaneous
  Country: US (occurrence: US)
  Receive Date: 20151020
  Receipt Date: 20151020
  Transmission Date: 20160304
  Serious: No
  Sender: FDA-Public Use
  Company Number: US-ROCHE-1615558

PATIENT
  Age: 74 Year
  Sex: Male

DRUGS (10)
  1. FOLBEE [Concomitant]
     Dosage: COMPOUNDED B VITAMIN
     Route: 065
  2. ATORVASTATIN [Concomitant]
     Active Substance: ATORVASTATIN
     Indication: BLOOD CHOLESTEROL INCREASED
     Route: 065
  3. ESBRIET [Suspect]
     Active Substance: PIRFENIDONE
     Indication: IDIOPATHIC PULMONARY FIBROSIS
     Dosage: 1 CAPSULE 3 TIMES A DAY WITH MEAL FOR 7 DAYS
     Route: 048
     Dates: start: 20150720
  4. ZYRTEC [Concomitant]
     Active Substance: CETIRIZINE HYDROCHLORIDE
     Indication: SEASONAL ALLERGY
     Dosage: TAKES 1/2 ALL YEAR ROUND
     Route: 065
  5. NASONEX [Concomitant]
     Active Substance: MOMETASONE FUROATE
     Indication: SEASONAL ALLERGY
     Dosage: TAKES YEAR ROUND
     Route: 065
  6. ESBRIET [Suspect]
     Active Substance: PIRFENIDONE
     Route: 048
     Dates: start: 20150727
  7. OMEPRAZOLE. [Concomitant]
     Active Substance: OMEPRAZOLE
     Indication: GASTROOESOPHAGEAL REFLUX DISEASE
     Route: 065
  8. ECOTRIN [Concomitant]
     Active Substance: ASPIRIN
     Dosage: COATED ASPIRIN
     Route: 065
  9. VITAMIN B12 [Concomitant]
     Active Substance: CYANOCOBALAMIN
  10. CODEINE SULFATE. [Concomitant]
     Active Substance: CODEINE SULFATE
     Indication: COUGH
     Dosage: TAKES IT WHEN HE NEEDS TO
     Route: 065

REACTIONS (11)
  - Feeling cold [Unknown]
  - Night sweats [Unknown]
  - Anxiety [Unknown]
  - Cold sweat [Unknown]
  - Nausea [Unknown]
  - Asthenia [Not Recovered/Not Resolved]
  - Feeling hot [Unknown]
  - Decreased appetite [Not Recovered/Not Resolved]
  - Fatigue [Not Recovered/Not Resolved]
  - Dyspnoea [Unknown]
  - Dysgeusia [Unknown]

NARRATIVE: CASE EVENT DATE: 20150728
